FAERS Safety Report 14595184 (Version 1)
Quarter: 2018Q1

REPORT INFORMATION
  Report Type: Spontaneous
  Country: US (occurrence: US)
  Receive Date: 20180302
  Receipt Date: 20180302
  Transmission Date: 20180509
  Serious: No
  Sender: FDA-Public Use
  Company Number: US-AKORN PHARMACEUTICALS-2017AKN00297

PATIENT
  Age: 13 Year
  Sex: Female
  Weight: 71.66 kg

DRUGS (6)
  1. MYORISAN [Suspect]
     Active Substance: ISOTRETINOIN
     Dosage: 40 MG, 1X/DAY
     Dates: start: 20170313, end: 20170327
  2. IBUPROFEN. [Concomitant]
     Active Substance: IBUPROFEN
  3. MYORISAN [Suspect]
     Active Substance: ISOTRETINOIN
     Indication: ACNE
     Dosage: 40 MG, 1X/DAY
     Route: 048
     Dates: start: 20170119, end: 20170216
  4. CAMRESE LO [Suspect]
     Active Substance: ETHINYL ESTRADIOL\LEVONORGESTREL
     Dosage: UNK
     Dates: start: 20170216, end: 20170226
  5. MYORISAN [Suspect]
     Active Substance: ISOTRETINOIN
     Dosage: 40 MG, 2X/DAY
     Route: 048
     Dates: start: 20170216, end: 20170226
  6. TYLENOL [Concomitant]
     Active Substance: ACETAMINOPHEN

REACTIONS (14)
  - Nausea [Recovered/Resolved]
  - Visual impairment [Recovering/Resolving]
  - Mass [Recovered/Resolved]
  - Vision blurred [Recovering/Resolving]
  - Vestibular neuronitis [Recovering/Resolving]
  - Eye disorder [Recovering/Resolving]
  - Headache [Recovered/Resolved]
  - Feeling abnormal [Recovered/Resolved]
  - Ear pain [Recovered/Resolved]
  - Viral labyrinthitis [Recovering/Resolving]
  - Intraocular pressure increased [Recovered/Resolved]
  - Dizziness [Recovered/Resolved]
  - Oropharyngeal pain [Recovered/Resolved]
  - Visual field defect [Recovering/Resolving]

NARRATIVE: CASE EVENT DATE: 2017
